FAERS Safety Report 25312471 (Version 4)
Quarter: 2025Q2

REPORT INFORMATION
  Report Type: Report from Study
  Country: CA (occurrence: CA)
  Receive Date: 20250514
  Receipt Date: 20250619
  Transmission Date: 20250717
  Serious: Yes (Other)
  Sender: TAKEDA
  Company Number: CA-TAKEDA-2025TUS045126

PATIENT
  Sex: Female

DRUGS (6)
  1. VEDOLIZUMAB [Suspect]
     Active Substance: VEDOLIZUMAB
     Indication: Colitis ulcerative
  2. VEDOLIZUMAB [Suspect]
     Active Substance: VEDOLIZUMAB
     Indication: Colitis ulcerative
     Dosage: 108 MILLIGRAM, Q2WEEKS
     Dates: start: 20250328, end: 20250523
  3. PREDNISONE [Concomitant]
     Active Substance: PREDNISONE
  4. MESALAMINE [Concomitant]
     Active Substance: MESALAMINE
  5. Salofalk [Concomitant]
  6. PENTASA [Concomitant]
     Active Substance: MESALAMINE

REACTIONS (7)
  - Haematochezia [Unknown]
  - Frequent bowel movements [Unknown]
  - Diarrhoea [Unknown]
  - Mucous stools [Unknown]
  - Insomnia [Unknown]
  - Productive cough [Unknown]
  - Treatment failure [Unknown]
